FAERS Safety Report 4365169-6 (Version None)
Quarter: 2004Q2

REPORT INFORMATION
  Report Type: 
  Country: None (occurrence: None)
  Receive Date: 20040525
  Receipt Date: 20040304
  Transmission Date: 20050107
  Serious: No
  Sender: FDA-Public Use
  Company Number: PHEH2004US02491

PATIENT
  Sex: Female

DRUGS (1)
  1. ZELNORM [Suspect]
     Indication: GASTROINTESTINAL DISORDER

REACTIONS (4)
  - DYSPHONIA [None]
  - DYSPNOEA [None]
  - ERUCTATION [None]
  - FLATULENCE [None]
